FAERS Safety Report 22398916 (Version 1)
Quarter: 2023Q2

REPORT INFORMATION
  Report Type: Spontaneous
  Country: HR (occurrence: None)
  Receive Date: 20230602
  Receipt Date: 20230602
  Transmission Date: 20230721
  Serious: Yes (Other)
  Sender: FDA-Public Use
  Company Number: 2023A120340

PATIENT
  Age: 60 Year
  Sex: Male

DRUGS (1)
  1. SEROQUEL [Suspect]
     Active Substance: QUETIAPINE FUMARATE
     Dosage: UNK
     Route: 048
     Dates: start: 20230407, end: 20230407

REACTIONS (3)
  - Electrocardiogram QRS complex prolonged [Unknown]
  - Suicide attempt [Unknown]
  - Bradycardia [Unknown]

NARRATIVE: CASE EVENT DATE: 20230407
